FAERS Safety Report 9463941 (Version 2)
Quarter: 2013Q3

REPORT INFORMATION
  Report Type: Spontaneous
  Country: JP (occurrence: JP)
  Receive Date: 20130819
  Receipt Date: 20130911
  Transmission Date: 20140515
  Serious: Yes (Hospitalization)
  Sender: FDA-Public Use
  Company Number: JP-ROCHE-1262268

PATIENT
  Age: 7 Year
  Sex: Male
  Weight: 24.5 kg

DRUGS (6)
  1. ACTEMRA [Suspect]
     Indication: JUVENILE IDIOPATHIC ARTHRITIS
     Route: 041
     Dates: start: 20130617, end: 20130803
  2. PREDONINE [Concomitant]
     Indication: JUVENILE IDIOPATHIC ARTHRITIS
     Route: 048
     Dates: start: 20130722, end: 20130803
  3. NEORAL [Concomitant]
     Indication: JUVENILE IDIOPATHIC ARTHRITIS
     Route: 048
     Dates: start: 20130722
  4. GASTER (JAPAN) [Concomitant]
     Route: 065
     Dates: start: 20130606
  5. BAKTAR [Concomitant]
     Route: 048
     Dates: start: 20130722
  6. DIFLUCAN [Concomitant]
     Route: 065
     Dates: start: 20130722

REACTIONS (2)
  - Histiocytosis haematophagic [Recovering/Resolving]
  - White blood cell count increased [Unknown]
